FAERS Safety Report 7491691-X (Version None)
Quarter: 2011Q2

REPORT INFORMATION
  Report Type: 
  Country: None (occurrence: None)
  Receive Date: 20110519
  Receipt Date: 20110511
  Transmission Date: 20111010
  Serious: Yes (Hospitalization)
  Sender: FDA-Public Use
  Company Number: KR-ROXANE LABORATORIES, INC.-2011-RO-00646RO

PATIENT
  Age: 54 Year
  Sex: Female

DRUGS (3)
  1. LIDOCAINE [Suspect]
     Indication: CERVICOBRACHIAL SYNDROME
     Dosage: 0.5 ML
     Route: 008
  2. ISOVIST [Suspect]
     Indication: X-RAY
     Route: 008
  3. TRIAMCINOLONE ACETATE [Suspect]
     Indication: CERVICOBRACHIAL SYNDROME
     Dosage: 15 MG
     Route: 008

REACTIONS (1)
  - POSTERIOR REVERSIBLE ENCEPHALOPATHY SYNDROME [None]
